FAERS Safety Report 16481959 (Version 1)
Quarter: 2019Q2

REPORT INFORMATION
  Report Type: Spontaneous
  Country: SE (occurrence: SE)
  Receive Date: 20190627
  Receipt Date: 20190627
  Transmission Date: 20190711
  Serious: Yes (Hospitalization)
  Sender: FDA-Public Use
  Company Number: SE-SA-2019SA165820

PATIENT
  Sex: Female

DRUGS (4)
  1. ZOPICLONE [Suspect]
     Active Substance: ZOPICLONE
     Indication: PRODUCT USED FOR UNKNOWN INDICATION
     Dosage: 1 (UNKNOWN UNIT), TOTAL
     Dates: start: 20190306, end: 20190306
  2. PROMETHAZINE HYDROCHLORIDE. [Suspect]
     Active Substance: PROMETHAZINE HYDROCHLORIDE
     Indication: PRODUCT USED FOR UNKNOWN INDICATION
     Dosage: 1 (UNKNOWN UNIT), TOTAL
     Route: 048
     Dates: start: 20190306, end: 20190306
  3. MELATONIN [Suspect]
     Active Substance: MELATONIN
     Dosage: 1 (UNKNOWN UNIT), TOTAL
     Dates: start: 20190306, end: 20190306
  4. ALIMEMAZINE [Suspect]
     Active Substance: TRIMEPRAZINE
     Indication: PRODUCT USED FOR UNKNOWN INDICATION
     Dosage: 1 (UNKNOWN UNIT), TOTAL
     Dates: start: 20190306, end: 20190306

REACTIONS (3)
  - Intentional overdose [Unknown]
  - Intentional self-injury [Unknown]
  - Suicide attempt [Unknown]

NARRATIVE: CASE EVENT DATE: 20190306
